FAERS Safety Report 5051506-6 (Version None)
Quarter: 2006Q3

REPORT INFORMATION
  Report Type: 
  Country: None (occurrence: None)
  Receive Date: 20060710
  Receipt Date: 20060627
  Transmission Date: 20061208
  Serious: Yes (Death)
  Sender: FDA-Public Use
  Company Number: 163-20785-06050153

PATIENT
  Age: 45 Year
  Sex: Male

DRUGS (1)
  1. THALOMID [Suspect]
     Indication: NEURODERMATITIS
     Dosage: 100-400MG DAILY ORAL
     Route: 048
     Dates: start: 20040301, end: 20060301

REACTIONS (3)
  - AUTOIMMUNE DISORDER [None]
  - GASTROENTERITIS CRYPTOSPORIDIAL [None]
  - PNEUMONIA [None]
